FAERS Safety Report 20221453 (Version 1)
Quarter: 2021Q4

REPORT INFORMATION
  Report Type: Report from Study
  Country: US (occurrence: US)
  Receive Date: 20211223
  Receipt Date: 20211223
  Transmission Date: 20220303
  Serious: Yes (Congenital Anomaly)
  Sender: FDA-Public Use
  Company Number: US-ABBVIE-21K-163-4208267-00

PATIENT
  Sex: Male
  Weight: 3.2 kg

DRUGS (1)
  1. HUMIRA [Suspect]
     Active Substance: ADALIMUMAB
     Indication: Maternal exposure timing unspecified
     Route: 064

REACTIONS (2)
  - Cleft lip [Unknown]
  - Foetal exposure during pregnancy [Unknown]
